FAERS Safety Report 5225943-0 (Version None)
Quarter: 2007Q1

REPORT INFORMATION
  Report Type: 
  Country: None (occurrence: None)
  Receive Date: 20070201
  Receipt Date: 20070122
  Transmission Date: 20070707
  Serious: Yes (Hospitalization)
  Sender: FDA-Public Use
  Company Number: PHRM2007FR00634

PATIENT
  Age: 53 Year
  Sex: Female

DRUGS (1)
  1. VOLTAREN [Suspect]
     Indication: ARTHRALGIA
     Dosage: 50 MG, QD
     Route: 048
     Dates: start: 20061001

REACTIONS (4)
  - ECZEMA [None]
  - ERYTHEMA [None]
  - PRURITUS GENERALISED [None]
  - RASH PUSTULAR [None]
